FAERS Safety Report 5419111-7 (Version None)
Quarter: 2007Q3

REPORT INFORMATION
  Report Type: 
  Country: None (occurrence: None)
  Receive Date: 20070820
  Receipt Date: 20070813
  Transmission Date: 20080115
  Serious: Yes (Death)
  Sender: FDA-Public Use
  Company Number: GB-ELI_LILLY_AND_COMPANY-GB200708002518

PATIENT
  Age: 48 Year
  Sex: Male
  Weight: 80 kg

DRUGS (2)
  1. ZYPREXA [Suspect]
     Indication: STRESS
     Dosage: 5 MG, UNKNOWN
     Route: 048
     Dates: start: 20070728, end: 20070728
  2. ZYPREXA [Suspect]
     Dosage: UNK MG, UNKNOWN
     Route: 065

REACTIONS (1)
  - MYOCARDIAL INFARCTION [None]
